FAERS Safety Report 4332450-6 (Version None)
Quarter: 2004Q2

REPORT INFORMATION
  Report Type: 
  Country: None (occurrence: None)
  Receive Date: 20040401
  Receipt Date: 20040324
  Transmission Date: 20050107
  Serious: Yes (Life-Threatening)
  Sender: FDA-Public Use
  Company Number: TCI2004A00683

PATIENT
  Age: 63 Year
  Sex: Male

DRUGS (4)
  1. BASEN TABLETS 0.3 (VOGLIBOSE) [Suspect]
     Indication: DIABETES MELLITUS
     Dosage: 0.9 MG (0.9 MG, 3 IN 1 D)
     Route: 048
     Dates: start: 20040210, end: 20040218
  2. ACTOS [Suspect]
     Indication: DIABETES MELLITUS
     Dosage: 15 MG (15 MG, 1 IN 1 D)
     Route: 048
     Dates: start: 20040210, end: 20040218
  3. ACTOS [Suspect]
     Indication: DIABETES MELLITUS
     Dosage: 15 MG (15 MG, 1 IN 1 D)
     Route: 048
     Dates: start: 20040229
  4. GLYBURIDE [Concomitant]

REACTIONS (7)
  - DIARRHOEA [None]
  - ENTEROCOLITIS [None]
  - ESCHERICHIA INFECTION [None]
  - HEPATIC CIRRHOSIS [None]
  - PLATELET COUNT DECREASED [None]
  - SEPTIC SHOCK [None]
  - WHITE BLOOD CELL COUNT DECREASED [None]
